FAERS Safety Report 8220528-6 (Version None)
Quarter: 2012Q1

REPORT INFORMATION
  Report Type: 
  Country: None (occurrence: None)
  Receive Date: 20120320
  Receipt Date: 20120313
  Transmission Date: 20120608
  Serious: Yes (Other)
  Sender: FDA-Public Use
  Company Number: US-BAYER-2012-013145

PATIENT
  Age: 45 Year
  Sex: Female
  Weight: 58.957 kg

DRUGS (3)
  1. AVELOX [Suspect]
     Indication: SINUSITIS
  2. PREDNISONE [Concomitant]
  3. ACETAMINOPHEN [Suspect]
     Indication: HEADACHE
     Dosage: TID PRN

REACTIONS (6)
  - MALAISE [None]
  - HEPATOTOXICITY [None]
  - PYREXIA [None]
  - HEADACHE [None]
  - HEPATIC ENZYME INCREASED [None]
  - CHROMATURIA [None]
